FAERS Safety Report 9562118 (Version 1)
Quarter: 2013Q3

REPORT INFORMATION
  Report Type: Spontaneous
  Country: US (occurrence: None)
  Receive Date: 20130830
  Receipt Date: 20130830
  Transmission Date: 20140515
  Serious: Yes (Hospitalization)
  Sender: FDA-Public Use
  Company Number: AMAG201203124

PATIENT
  Age: 67 Year
  Sex: Female
  Weight: 63 kg

DRUGS (7)
  1. FERAHEME (FERUMOXYTOL) INJECTION, 510MG [Suspect]
     Indication: IRON DEFICIENCY
     Dosage: 510 MG, SINBLE, IV PUSH
     Route: 042
     Dates: start: 20120926, end: 20120926
  2. ALBTEROL INHALER (ALBUTEROL) [Concomitant]
  3. ADVAIR DISKUS (FLUTICASONE PROPIONATE, SALMETEROLXINAFOATE) [Concomitant]
  4. COMBIVENT (CALCIUM) [Concomitant]
  5. CALCIUM (CALCIUM) [Concomitant]
  6. VITAMIN D (COLECALCIFEROL) [Concomitant]
  7. ERGOCALCIFEROL (ERGOCALCIFEROL) [Concomitant]

REACTIONS (7)
  - Dyspnoea [None]
  - Cardiac arrest [None]
  - Pulse absent [None]
  - Unresponsive to stimuli [None]
  - Speech disorder [None]
  - Cough [None]
  - Erythema [None]
